FAERS Safety Report 4635839-0 (Version None)
Quarter: 2005Q2

REPORT INFORMATION
  Report Type: 
  Country: None (occurrence: None)
  Receive Date: 20050413
  Receipt Date: 20050404
  Transmission Date: 20051028
  Serious: Yes (Hospitalization)
  Sender: FDA-Public Use
  Company Number: 050029

PATIENT
  Age: 64 Year
  Sex: Female
  Weight: 54.8852 kg

DRUGS (1)
  1. GOLYTELY [Suspect]
     Indication: COLONOSCOPY
     Dosage: 4L , 1X, PO
     Route: 048
     Dates: start: 20040101

REACTIONS (2)
  - BLOOD POTASSIUM ABNORMAL [None]
  - INFREQUENT BOWEL MOVEMENTS [None]
